FAERS Safety Report 5241803-3 (Version None)
Quarter: 2007Q1

REPORT INFORMATION
  Report Type: 
  Country: None (occurrence: None)
  Receive Date: 20070220
  Receipt Date: 20070118
  Transmission Date: 20070707
  Serious: Yes (Death)
  Sender: FDA-Public Use
  Company Number: SE-ROCHE-478816

PATIENT
  Age: 54 Year
  Sex: Male

DRUGS (20)
  1. CYMEVENE [Suspect]
     Indication: CYTOMEGALOVIRUS GASTROINTESTINAL INFECTION
     Route: 042
     Dates: start: 20011127, end: 20011210
  2. CYMEVENE [Suspect]
     Dosage: DUE TO POSITIVE CMV RESTARTED. FORM REPORTED AS POWDER FOR SOLUTION FOR INFUSION. TWO TIMES 100 MG.
     Route: 042
     Dates: start: 20020108, end: 20020109
  3. CELLCEPT [Suspect]
     Indication: DRUG USE FOR UNKNOWN INDICATION
     Dosage: DOSE REPORTED AS 2GMD GM D.
     Route: 048
     Dates: start: 20011221, end: 20020113
  4. KAVEPENIN [Suspect]
     Dosage: FORM REPORTED AS FILM-COATED TABLET. DOSE REPORTED AS 1GMD GM D.
     Route: 048
     Dates: start: 20011003, end: 20011010
  5. REBIF [Suspect]
     Dosage: MAINTENANCE DOSE. FORM REPORTED AS SOLUTION FOR INJECTION. PREFILLED SYRINGE.
     Route: 058
     Dates: start: 20010615, end: 20011031
  6. ALVEDON [Concomitant]
     Dosage: HE USED TWO TABLETS A COUPLE OF HOURS AFTER INTERFERON BETA-1A INJECTION, AND A FEW TABLETS THE OTH+
     Route: 048
     Dates: start: 20010615
  7. VANCOMYCIN HCL [Concomitant]
  8. AMBISOME [Concomitant]
  9. FK463 [Concomitant]
  10. AMPICILLIN [Concomitant]
  11. CEFTAZIDIME [Concomitant]
  12. CIPROFLOXACIN [Concomitant]
  13. METRONIDAZOLE [Concomitant]
  14. NETILMICIN SULFATE [Concomitant]
  15. OMEPRAZOLE [Concomitant]
  16. FUROSEMIDE [Concomitant]
  17. MEROPENEM [Concomitant]
  18. MYCOSTATIN [Concomitant]
  19. PREDNISOLONE [Concomitant]
  20. TIENAM [Concomitant]

REACTIONS (26)
  - ABDOMINAL DISTENSION [None]
  - ABDOMINAL PAIN [None]
  - ARTERIOSCLEROSIS CORONARY ARTERY [None]
  - BILIARY TRACT DISORDER [None]
  - BLOOD BILIRUBIN INCREASED [None]
  - BONE MARROW TOXICITY [None]
  - CELL DEATH [None]
  - CHOLESTASIS [None]
  - CYTOLYTIC HEPATITIS [None]
  - FATIGUE [None]
  - HAEMORRHAGE [None]
  - HEPATOCELLULAR DAMAGE [None]
  - HYPOTENSION [None]
  - LIVER DISORDER [None]
  - LOSS OF CONSCIOUSNESS [None]
  - MELAENA [None]
  - MULTI-ORGAN FAILURE [None]
  - PAIN [None]
  - PANCREATITIS HAEMORRHAGIC [None]
  - PANCYTOPENIA [None]
  - PULMONARY OEDEMA [None]
  - SHOCK [None]
  - TACHYCARDIA [None]
  - TACHYPNOEA [None]
  - TRACHEAL HAEMORRHAGE [None]
  - VENTRICULAR HYPERTROPHY [None]
